FAERS Safety Report 12385233 (Version 1)
Quarter: 2016Q2

REPORT INFORMATION
  Report Type: Spontaneous
  Country: DE (occurrence: DE)
  Receive Date: 20160519
  Receipt Date: 20160519
  Transmission Date: 20160815
  Serious: Yes (Hospitalization, Other)
  Sender: FDA-Public Use
  Company Number: DE-AMGEN-DEUSP2016062691

PATIENT
  Sex: Male

DRUGS (14)
  1. DOXORUBICINE                       /00330901/ [Suspect]
     Active Substance: DOXORUBICIN
     Indication: B-CELL LYMPHOMA
     Dosage: 97 MG, 1 TIMES A DAY(S) FOR 1 DAY(S)
     Route: 042
     Dates: start: 20151217, end: 20151217
  2. PREDNISONE. [Suspect]
     Active Substance: PREDNISONE
     Indication: B-CELL LYMPHOMA
     Dosage: 100 MG, 1 TIMES A DAY(S) FOR 5DAY(S)
     Route: 048
     Dates: start: 20151217, end: 20151221
  3. CYCLOPHOSPHAMIDE. [Suspect]
     Active Substance: CYCLOPHOSPHAMIDE
     Indication: B-CELL LYMPHOMA
     Dosage: 1460 MG, 1 TIMES A DAY(S) FOR 1 DAY(S)
     Route: 042
     Dates: start: 20151217, end: 20151217
  4. TORASEMIDE [Concomitant]
     Active Substance: TORSEMIDE
     Indication: HYPERTENSION
     Dosage: 10 MG, 1 TIMES A DAY
     Route: 048
  5. ALLOPURINOL. [Concomitant]
     Active Substance: ALLOPURINOL
     Indication: HYPERURICAEMIA
     Dosage: 100 MG, 1 TIME A DAY
     Route: 048
  6. PEGFILGRASTIM [Suspect]
     Active Substance: PEGFILGRASTIM
     Indication: B-CELL LYMPHOMA
     Dosage: 6 MG, 1 TIMES A DAY(S) FOR 1 DAY(S)
     Route: 058
     Dates: start: 20151220, end: 20151220
  7. VINCRISTINE [Suspect]
     Active Substance: VINCRISTINE
     Indication: B-CELL LYMPHOMA
     Dosage: 3.88 MG, 1 TIMES A DAY(S) FOR 1 DAY(S)
     Route: 042
     Dates: start: 20151117, end: 20151117
  8. RITUXIMAB [Suspect]
     Active Substance: RITUXIMAB
     Indication: B-CELL LYMPHOMA
     Dosage: 730 MG, 1 TIMES A DAY(S) FOR 1 DAY(S)
     Route: 042
     Dates: start: 20160113, end: 20160113
  9. PANTOPRAZOL [Concomitant]
     Active Substance: PANTOPRAZOLE SODIUM
     Indication: PROPHYLAXIS AGAINST GASTROINTESTINAL ULCER
     Dosage: 40 MG, 1 TIMES A DAY
     Route: 048
  10. METOPROLOL SUCCINATE. [Concomitant]
     Active Substance: METOPROLOL SUCCINATE
     Indication: HYPERTENSION
     Dosage: 47.5 MG, 1 TIMES A DAY
     Route: 048
  11. BUDESONIDE W/FORMOTEROL FUMARATE [Concomitant]
     Active Substance: BUDESONIDE\FORMOTEROL FUMARATE
     Indication: CHRONIC OBSTRUCTIVE PULMONARY DISEASE
     Dosage: 320 MCG, 1-0-1
     Route: 055
  12. TIOTROPIUM BROMIDE [Concomitant]
     Active Substance: TIOTROPIUM BROMIDE
     Indication: CHRONIC OBSTRUCTIVE PULMONARY DISEASE
     Dosage: 18 MCG, 1 TIMES A DAY
     Route: 055
  13. PHENPROCOUMON [Concomitant]
     Active Substance: PHENPROCOUMON
     Indication: HEART VALVE REPLACEMENT
     Dosage: 3 MG, 0-0-1/2
     Route: 048
  14. LIOTHYRONINE SODIUM. [Concomitant]
     Active Substance: LIOTHYRONINE SODIUM
     Indication: HYPOTHYROIDISM
     Dosage: 100 MCG, 1 TIMES A DAY
     Route: 048

REACTIONS (2)
  - Soft tissue infection [Recovered/Resolved]
  - Bronchitis [Recovered/Resolved]

NARRATIVE: CASE EVENT DATE: 20160406
